FAERS Safety Report 6435625-5 (Version None)
Quarter: 2009Q4

REPORT INFORMATION
  Report Type: 
  Country: None (occurrence: None)
  Receive Date: 20091111
  Receipt Date: 20091102
  Transmission Date: 20100525
  Serious: Yes (Hospitalization)
  Sender: FDA-Public Use
  Company Number: DE-TEVA-214065ISR

PATIENT
  Age: 66 Year
  Sex: Female

DRUGS (3)
  1. CISPLATIN [Suspect]
  2. CARBOPLATIN [Concomitant]
  3. TOPOTECAN [Concomitant]

REACTIONS (1)
  - VENTRICULAR TACHYCARDIA [None]
